FAERS Safety Report 12519765 (Version 1)
Quarter: 2016Q2

REPORT INFORMATION
  Report Type: Spontaneous
  Country: BR (occurrence: BR)
  Receive Date: 20160630
  Receipt Date: 20160630
  Transmission Date: 20160815
  Serious: Yes (Hospitalization)
  Sender: FDA-Public Use
  Company Number: BR-BIOMARINAP-BR-2016-110007

PATIENT
  Sex: Female
  Weight: 17 kg

DRUGS (1)
  1. NAGLAZYME [Suspect]
     Active Substance: GALSULFASE
     Indication: MUCOPOLYSACCHARIDOSIS VI
     Dosage: 20 ML, QW
     Route: 042
     Dates: start: 20130116

REACTIONS (2)
  - Sleep apnoea syndrome [Recovered/Resolved]
  - Nasopharyngitis [Recovering/Resolving]
